FAERS Safety Report 14298984 (Version 1)
Quarter: 2017Q4

REPORT INFORMATION
  Report Type: Spontaneous
  Country: US (occurrence: US)
  Receive Date: 20171217
  Receipt Date: 20171217
  Transmission Date: 20180321
  Serious: Yes (Disabling)
  Sender: FDA-Public Use
  Company Number: None

PATIENT
  Sex: Male
  Weight: 73.35 kg

DRUGS (2)
  1. SUDAFED [Concomitant]
     Active Substance: PSEUDOEPHEDRINE HYDROCHLORIDE
  2. LEVOFLOXACIN. [Suspect]
     Active Substance: LEVOFLOXACIN
     Indication: SINUSITIS
     Dates: start: 20171214, end: 20171217

REACTIONS (10)
  - Insomnia [None]
  - Movement disorder [None]
  - Arthralgia [None]
  - Dizziness [None]
  - Paraesthesia [None]
  - Confusional state [None]
  - Loss of personal independence in daily activities [None]
  - Fatigue [None]
  - Hypoaesthesia [None]
  - Headache [None]

NARRATIVE: CASE EVENT DATE: 20171216
